FAERS Safety Report 21401910 (Version 5)
Quarter: 2022Q4

REPORT INFORMATION
  Report Type: Report from Study
  Country: MX (occurrence: MX)
  Receive Date: 20221003
  Receipt Date: 20221206
  Transmission Date: 20230112
  Serious: Yes (Other)
  Sender: FDA-Public Use
  Company Number: MX-NOVARTISPH-NVSC2022MX192756

PATIENT
  Sex: Female
  Weight: 99 kg

DRUGS (2)
  1. KISQALI [Suspect]
     Active Substance: RIBOCICLIB
     Indication: Breast cancer
     Dosage: 600 MG, QD
     Route: 048
     Dates: start: 20220725
  2. KISQALI [Suspect]
     Active Substance: RIBOCICLIB
     Dosage: UNK
     Route: 048

REACTIONS (25)
  - Hypoglycaemia [Recovered/Resolved]
  - Type 2 diabetes mellitus [Unknown]
  - Kidney infection [Unknown]
  - Mood altered [Unknown]
  - Feeling abnormal [Unknown]
  - Hypotension [Unknown]
  - Bone pain [Unknown]
  - Diarrhoea [Unknown]
  - Nausea [Unknown]
  - Constipation [Unknown]
  - Vomiting [Unknown]
  - Chills [Unknown]
  - Hyperhidrosis [Unknown]
  - Urinary tract infection [Unknown]
  - Eating disorder [Unknown]
  - Pain [Unknown]
  - Contusion [Unknown]
  - Feeling of body temperature change [Unknown]
  - Fall [Unknown]
  - Asthenia [Unknown]
  - Pyrexia [Unknown]
  - Dizziness [Unknown]
  - Weight decreased [Unknown]
  - Back pain [Unknown]
  - Fatigue [Unknown]
